FAERS Safety Report 7964447-9 (Version None)
Quarter: 2011Q4

REPORT INFORMATION
  Report Type: 
  Country: None (occurrence: None)
  Receive Date: 20111208
  Receipt Date: 20111202
  Transmission Date: 20120403
  Serious: Yes (Life-Threatening)
  Sender: FDA-Public Use
  Company Number: SK-UCBSA-045274

PATIENT
  Age: 74 Year
  Sex: Female
  Weight: 82 kg

DRUGS (27)
  1. NEBIVOLOL HCL [Concomitant]
     Indication: HYPERTENSION
  2. CARBIDOPA AND LEVODOPA [Concomitant]
     Dates: start: 20100930, end: 20101002
  3. NEUPRO [Suspect]
     Indication: PARKINSON'S DISEASE
     Route: 062
     Dates: start: 20110228, end: 20111108
  4. ANOPYRIN [Concomitant]
     Indication: THROMBOSIS PROPHYLAXIS
  5. CAVINTON FORTE [Concomitant]
     Dates: start: 20111108
  6. FUROSEMIDE [Concomitant]
     Indication: POLYURIA
  7. KALDYUM [Concomitant]
     Indication: BLOOD POTASSIUM NORMAL
  8. OMEPRAZOLE [Concomitant]
     Indication: PROPHYLAXIS
  9. NOOTROPIL [Concomitant]
     Indication: COGNITIVE DISORDER
  10. ALLOPURINOL [Concomitant]
     Indication: HYPERURICAEMIA
  11. SIMVOR [Concomitant]
     Indication: HYPERCHOLESTEROLAEMIA
     Dates: end: 20111001
  12. VINPOCETIN COVEX [Concomitant]
     Indication: VASODILATION PROCEDURE
     Dates: start: 20100823, end: 20110920
  13. NEUPRO [Suspect]
     Route: 062
     Dates: start: 20110215, end: 20110221
  14. RAMIPRIL [Concomitant]
     Indication: HYPERTENSION
  15. COSTI [Concomitant]
     Indication: PROPHYLAXIS
     Dates: start: 20100920
  16. LYRICA [Concomitant]
     Indication: NEURALGIA
     Dates: start: 20100923
  17. CAVINTON FORTE [Concomitant]
     Indication: VASODILATATION
     Dates: start: 20110920, end: 20111108
  18. CARBIDOPA AND LEVODOPA [Concomitant]
     Dates: start: 20100927, end: 20100929
  19. NEUPRO [Suspect]
     Route: 062
     Dates: start: 20110201, end: 20110207
  20. FUROSEMIDE [Concomitant]
     Indication: HYPERKALAEMIA
  21. AMICLOTON [Concomitant]
     Indication: HYPERTENSION
     Dates: end: 20111016
  22. CARBIDOPA AND LEVODOPA [Concomitant]
     Indication: PARKINSON'S DISEASE
     Dates: start: 20110121
  23. CARBIDOPA AND LEVODOPA [Concomitant]
     Dates: start: 20101003, end: 20110120
  24. CARBIDOPA AND LEVODOPA [Concomitant]
     Dates: start: 20100923, end: 20100926
  25. NEUPRO [Suspect]
     Route: 062
     Dates: start: 20110208, end: 20110214
  26. CONCOR [Concomitant]
     Indication: MYOCARDIAL ISCHAEMIA
  27. ALPHA D3 [Concomitant]
     Indication: OSTEOPOROSIS PROPHYLAXIS
     Dates: start: 20110120

REACTIONS (1)
  - RENAL FAILURE [None]
